FAERS Safety Report 21586097 (Version 6)
Quarter: 2023Q2

REPORT INFORMATION
  Report Type: Spontaneous
  Country: CA (occurrence: CA)
  Receive Date: 20221112
  Receipt Date: 20230610
  Transmission Date: 20230721
  Serious: Yes (Other)
  Sender: FDA-Public Use
  Company Number: CA-CELLTRION INC.-2021CA018166

PATIENT

DRUGS (16)
  1. INFLECTRA [Suspect]
     Active Substance: INFLIXIMAB-DYYB
     Indication: Colitis ulcerative
     Dosage: 450 MG, EVERY 6 WEEK
     Route: 042
  2. INFLECTRA [Suspect]
     Active Substance: INFLIXIMAB-DYYB
     Dosage: 450 MG, EVERY 6 WEEK
     Route: 042
     Dates: start: 20211126
  3. INFLECTRA [Suspect]
     Active Substance: INFLIXIMAB-DYYB
     Dosage: 450 MG, EVERY 6 WEEK
     Route: 042
     Dates: start: 20220111
  4. INFLECTRA [Suspect]
     Active Substance: INFLIXIMAB-DYYB
     Dosage: 450 MG, EVERY 6 WEEK
     Route: 042
     Dates: start: 20220222
  5. INFLECTRA [Suspect]
     Active Substance: INFLIXIMAB-DYYB
     Dosage: 450 MG, EVERY 6 WEEK
     Route: 042
     Dates: start: 20220405
  6. INFLECTRA [Suspect]
     Active Substance: INFLIXIMAB-DYYB
     Dosage: 450 MG, EVERY 6 WEEK
     Route: 042
     Dates: start: 20220517
  7. INFLECTRA [Suspect]
     Active Substance: INFLIXIMAB-DYYB
     Dosage: 450 MG, EVERY 6 WEEKS
     Route: 042
     Dates: start: 20220628
  8. INFLECTRA [Suspect]
     Active Substance: INFLIXIMAB-DYYB
     Dosage: 450 MG, EVERY 6 WEEKS
     Route: 042
     Dates: start: 20220809
  9. INFLECTRA [Suspect]
     Active Substance: INFLIXIMAB-DYYB
     Dosage: 450 MG, EVERY 6 WEEKS
     Route: 042
     Dates: start: 20220920
  10. INFLECTRA [Suspect]
     Active Substance: INFLIXIMAB-DYYB
     Dosage: 450 MG, EVERY 6 WEEKS
     Route: 042
     Dates: start: 20221102
  11. INFLECTRA [Suspect]
     Active Substance: INFLIXIMAB-DYYB
     Dosage: 450 MG, EVERY 6 WEEKS
     Route: 042
     Dates: start: 20221213
  12. INFLECTRA [Suspect]
     Active Substance: INFLIXIMAB-DYYB
     Dosage: 450 MG, EVERY 6 WEEKS
     Route: 042
     Dates: start: 20230125
  13. INFLECTRA [Suspect]
     Active Substance: INFLIXIMAB-DYYB
     Dosage: 450 MG, EVERY 6 WEEKS
     Route: 042
     Dates: start: 20230306
  14. INFLECTRA [Suspect]
     Active Substance: INFLIXIMAB-DYYB
     Dosage: 450 MG, EVERY 6 WEEKS
     Route: 042
     Dates: start: 20230418
  15. INFLECTRA [Suspect]
     Active Substance: INFLIXIMAB-DYYB
     Dosage: 450 MG Q6 WEEKS
     Route: 042
     Dates: start: 20230530
  16. CLINDAMYCIN [Concomitant]
     Active Substance: CLINDAMYCIN
     Indication: Antibiotic prophylaxis
     Dosage: 300 MG, 4X/DAY FOR 7 DAYS

REACTIONS (12)
  - Nodule [Recovering/Resolving]
  - Skin cancer [Recovered/Resolved]
  - Erythema [Unknown]
  - Pruritus [Unknown]
  - Hyperaesthesia [Recovered/Resolved]
  - Condition aggravated [Recovered/Resolved]
  - Infusion site erythema [Unknown]
  - Infusion site pruritus [Unknown]
  - Contusion [Unknown]
  - Off label use [Unknown]
  - Off label use [Unknown]
  - Intentional product use issue [Unknown]

NARRATIVE: CASE EVENT DATE: 20220222
